FAERS Safety Report 6546458-3 (Version None)
Quarter: 2010Q1

REPORT INFORMATION
  Report Type: 
  Country: None (occurrence: None)
  Receive Date: 20100122
  Receipt Date: 20100118
  Transmission Date: 20100710
  Serious: Yes (Death, Other)
  Sender: FDA-Public Use
  Company Number: PHHY2009BR59166

PATIENT
  Sex: Male

DRUGS (1)
  1. FORASEQ [Suspect]

REACTIONS (5)
  - ATRIAL FIBRILLATION [None]
  - CARDIAC ARREST [None]
  - GASTROINTESTINAL ISCHAEMIA [None]
  - LUNG DISORDER [None]
  - PRODUCT QUALITY ISSUE [None]
